FAERS Safety Report 8797286 (Version 1)
Quarter: 2012Q4

REPORT INFORMATION
  Report Type: 
  Country: US (occurrence: US)
  Receive Date: 20120919
  Receipt Date: 20120919
  Transmission Date: 20130627
  Serious: Yes (Other)
  Sender: FDA-Public Use
  Company Number: US-ALLERGAN-1212772US

PATIENT
  Sex: Female

DRUGS (4)
  1. BOTULINUM TOXIN TYPE A UNK [Suspect]
     Indication: DRUG USE FOR UNKNOWN INDICATION
     Dosage: UNK UNK, single
  2. CLINDAMYCIN [Concomitant]
     Indication: STROKE
  3. BACLOFEN [Concomitant]
     Route: 037
  4. ANTIMUSCARINICS [Concomitant]
     Route: 048

REACTIONS (1)
  - Botulism [Unknown]
